FAERS Safety Report 6682505-6 (Version None)
Quarter: 2010Q2

REPORT INFORMATION
  Report Type: 
  Country: None (occurrence: None)
  Receive Date: 20100415
  Receipt Date: 20100408
  Transmission Date: 20101027
  Serious: Yes (Hospitalization, Other)
  Sender: FDA-Public Use
  Company Number: DE-NOVOPROD-290943

PATIENT
  Sex: Male
  Weight: 84 kg

DRUGS (1)
  1. ACTRAPID [Suspect]
     Indication: TYPE 1 DIABETES MELLITUS
     Dosage: 6 IU, QD
     Route: 058
     Dates: start: 20090818, end: 20090818

REACTIONS (3)
  - BRONCHOSPASM [None]
  - DYSPNOEA [None]
  - FLUSHING [None]
